FAERS Safety Report 7983642-6 (Version None)
Quarter: 2011Q4

REPORT INFORMATION
  Report Type: 
  Country: None (occurrence: None)
  Receive Date: 20111215
  Receipt Date: 20111208
  Transmission Date: 20120403
  Serious: Yes (Hospitalization, Other)
  Sender: FDA-Public Use
  Company Number: US-ASTRAZENECA-2011SE74371

PATIENT
  Sex: Male

DRUGS (9)
  1. NEURONTIN [Concomitant]
  2. AMBIEN [Concomitant]
     Indication: SLEEP DISORDER
  3. CELEBREX [Concomitant]
  4. OXYCODONE HCL [Concomitant]
     Indication: SPINAL DISORDER
  5. METOPROLOL TARTRATE [Concomitant]
  6. SEROQUEL XR [Suspect]
     Indication: BIPOLAR DISORDER
     Route: 048
  7. SEROQUEL XR [Suspect]
     Route: 048
  8. CLONIDINE [Concomitant]
     Indication: BLOOD PRESSURE ABNORMAL
  9. SIMVASTATIN [Concomitant]

REACTIONS (13)
  - SPINAL DISORDER [None]
  - VISION BLURRED [None]
  - CEREBROVASCULAR ACCIDENT [None]
  - ANGER [None]
  - LACRIMATION INCREASED [None]
  - CONDITION AGGRAVATED [None]
  - AGGRESSION [None]
  - DRUG DOSE OMISSION [None]
  - BODY HEIGHT DECREASED [None]
  - ACCIDENT AT WORK [None]
  - NAUSEA [None]
  - HEADACHE [None]
  - VISUAL IMPAIRMENT [None]
